FAERS Safety Report 14602682 (Version 3)
Quarter: 2018Q2

REPORT INFORMATION
  Report Type: Spontaneous
  Country: GB (occurrence: GB)
  Receive Date: 20180306
  Receipt Date: 20180406
  Transmission Date: 20180711
  Serious: Yes (Other)
  Sender: FDA-Public Use
  Company Number: GB-009507513-1802GBR013497

PATIENT
  Age: 71 Year
  Sex: Male
  Weight: 67 kg

DRUGS (5)
  1. ZEROBASE [Concomitant]
     Dosage: APPLIED IMMEDIATELY BEFORE OINTMENT APPLIED
  2. ELOCON [Suspect]
     Active Substance: MOMETASONE FUROATE
     Indication: PRODUCT USED FOR UNKNOWN INDICATION
     Dosage: 2 DF, QD
     Route: 061
     Dates: start: 20180201, end: 20180211
  3. ELOCON [Suspect]
     Active Substance: MOMETASONE FUROATE
     Dosage: 8 DF, BID
     Route: 061
     Dates: start: 20180201, end: 20180211
  4. ELOCON [Suspect]
     Active Substance: MOMETASONE FUROATE
     Dosage: 2 DF, QD
     Route: 061
     Dates: start: 20180201, end: 20180211
  5. ELOCON [Suspect]
     Active Substance: MOMETASONE FUROATE
     Dosage: 8 DF, BID
     Route: 061
     Dates: start: 20180201, end: 20180211

REACTIONS (6)
  - Pruritus [Not Recovered/Not Resolved]
  - Rash erythematous [Not Recovered/Not Resolved]
  - Skin burning sensation [Not Recovered/Not Resolved]
  - Folliculitis [Not Recovered/Not Resolved]
  - Pain of skin [Not Recovered/Not Resolved]
  - Skin infection [Not Recovered/Not Resolved]

NARRATIVE: CASE EVENT DATE: 20180205
